FAERS Safety Report 9244325 (Version 1)
Quarter: 2013Q1

REPORT INFORMATION
  Report Type: Spontaneous
  Country: US (occurrence: None)
  Receive Date: 20121130
  Receipt Date: 20121130
  Transmission Date: 20140127
  Serious: Yes (Other)
  Sender: FDA-Public Use
  Company Number: US201207000882

PATIENT
  Age: 47 Year
  Sex: Female
  Weight: 63.5 kg

DRUGS (5)
  1. BYDUREON [Suspect]
     Dosage: 2 MG, WEEKILY (1/W)
     Route: 058
     Dates: start: 20120424, end: 20120508
  2. DIOVAN (VALSARTAN) [Concomitant]
  3. METFORMIN (METFORMIN) [Concomitant]
  4. NEXIUM [Concomitant]
  5. IBUPROFEN (IBUPROFEN) [Concomitant]

REACTIONS (7)
  - Swelling face [None]
  - Urticaria [None]
  - Oedema peripheral [None]
  - Skin reaction [None]
  - Injection site warmth [None]
  - Injection site nodule [None]
  - Injection site erythema [None]
